FAERS Safety Report 6412139-X (Version None)
Quarter: 2009Q4

REPORT INFORMATION
  Report Type: 
  Country: None (occurrence: None)
  Receive Date: 20091023
  Receipt Date: 20091019
  Transmission Date: 20100525
  Serious: Yes (Hospitalization, Congenital Anomaly)
  Sender: FDA-Public Use
  Company Number: A0661739A

PATIENT
  Sex: Male
  Weight: 3.5 kg

DRUGS (17)
  1. PAXIL CR [Suspect]
     Indication: DEPRESSION
     Dosage: 25MG PER DAY
     Dates: start: 20050725
  2. PAXIL [Suspect]
     Indication: DEPRESSION
     Dosage: 20MG PER DAY
     Dates: start: 20050301, end: 20050701
  3. PHENERGAN HCL [Concomitant]
     Dates: start: 20050401
  4. INTRAVENOUS FLUIDS [Concomitant]
     Dates: start: 20050401
  5. LEVAQUIN [Concomitant]
     Dates: start: 20050301
  6. METRONIDAZOLE [Concomitant]
     Dates: start: 20050301
  7. MACRODANTIN [Concomitant]
     Dates: start: 20050701
  8. DETROL LA [Concomitant]
     Dates: start: 20050701
  9. IBUPROFEN [Concomitant]
     Dates: start: 20050701
  10. CEPHALEXIN [Concomitant]
     Dates: start: 20050701
  11. SULFAMETHOXAZOLE [Concomitant]
     Dates: start: 20050701
  12. AMOXICILLIN [Concomitant]
     Dates: start: 20050901
  13. NOVOLOG [Concomitant]
     Dates: start: 20051101
  14. AMBIEN [Concomitant]
     Dates: start: 20051101
  15. VITAMIN TAB [Concomitant]
  16. LANTUS [Concomitant]
  17. TUMS [Concomitant]

REACTIONS (27)
  - ANXIETY [None]
  - AORTIC VALVE INCOMPETENCE [None]
  - ATRIAL SEPTAL DEFECT [None]
  - BRADYCARDIA [None]
  - CARDIAC FAILURE CONGESTIVE [None]
  - CARDIAC MURMUR [None]
  - CARDIOMEGALY [None]
  - CONGENITAL AORTIC ATRESIA [None]
  - CYANOSIS [None]
  - DRUG EXPOSURE DURING PREGNANCY [None]
  - EMOTIONAL DISORDER [None]
  - FLUID RETENTION [None]
  - FOETAL MACROSOMIA [None]
  - GENERALISED OEDEMA [None]
  - HYPOPLASTIC LEFT HEART SYNDROME [None]
  - HYPOXIA [None]
  - MITRAL VALVE DISEASE [None]
  - MITRAL VALVE INCOMPETENCE [None]
  - OBSTRUCTIVE AIRWAYS DISORDER [None]
  - PAIN [None]
  - PATENT DUCTUS ARTERIOSUS [None]
  - PNEUMOTHORAX [None]
  - PREMATURE BABY [None]
  - RIGHT VENTRICULAR FAILURE [None]
  - SWELLING [None]
  - TRICUSPID VALVE INCOMPETENCE [None]
  - VENTRICULAR DYSFUNCTION [None]
